FAERS Safety Report 13506238 (Version 1)
Quarter: 2017Q2

REPORT INFORMATION
  Report Type: Spontaneous
  Country: US (occurrence: US)
  Receive Date: 20170502
  Receipt Date: 20170502
  Transmission Date: 20170830
  Serious: Yes (Other)
  Sender: FDA-Public Use
  Company Number: US-ROCHE-1517946

PATIENT
  Age: 54 Year
  Sex: Female

DRUGS (2)
  1. AVASTIN [Suspect]
     Active Substance: BEVACIZUMAB
     Indication: NON-SMALL CELL LUNG CANCER
     Route: 065
  2. ALIMTA [Concomitant]
     Active Substance: PEMETREXED DISODIUM
     Route: 065

REACTIONS (1)
  - Small intestinal haemorrhage [Unknown]
